FAERS Safety Report 8837954 (Version 1)
Quarter: 2012Q4

REPORT INFORMATION
  Report Type: Report from Study
  Country: PT (occurrence: PT)
  Receive Date: 20121012
  Receipt Date: 20121012
  Transmission Date: 20130627
  Serious: Yes (Other)
  Sender: FDA-Public Use
  Company Number: PT-ROCHE-1140157

PATIENT

DRUGS (1)
  1. ROACTEMRA [Suspect]
     Indication: RHEUMATOID ARTHRITIS
     Route: 065

REACTIONS (4)
  - Anaphylactic reaction [Unknown]
  - Haematotoxicity [Recovered/Resolved]
  - Drug effect decreased [Unknown]
  - Liver function test abnormal [Unknown]
